FAERS Safety Report 4747514-2 (Version None)
Quarter: 2005Q3

REPORT INFORMATION
  Report Type: 
  Country: None (occurrence: None)
  Receive Date: 20050816
  Receipt Date: 20050802
  Transmission Date: 20060218
  Serious: Yes (Death)
  Sender: FDA-Public Use
  Company Number: 204213

PATIENT
  Age: 58 Year
  Sex: Female

DRUGS (2)
  1. AVONEX [Suspect]
     Indication: MULTIPLE SCLEROSIS
     Dosage: 30 UG;QW;IM; SEE IMAGE
     Route: 030
     Dates: end: 20040829
  2. AVONEX [Suspect]
     Indication: MULTIPLE SCLEROSIS
     Dosage: 30 UG;QW;IM; SEE IMAGE
     Route: 030
     Dates: start: 19970624

REACTIONS (3)
  - CHOKING [None]
  - DYSPNOEA [None]
  - MULTIPLE SCLEROSIS [None]
